FAERS Safety Report 7935709-6 (Version None)
Quarter: 2011Q4

REPORT INFORMATION
  Report Type: 
  Country: None (occurrence: None)
  Receive Date: 20111123
  Receipt Date: 20111114
  Transmission Date: 20120403
  Serious: Yes (Other)
  Sender: FDA-Public Use
  Company Number: US-BAYER-2011-086584

PATIENT
  Age: 33 Year
  Sex: Female

DRUGS (2)
  1. MIRENA [Suspect]
     Indication: CONTRACEPTION
     Dosage: 20 MCG/24HR, CONT
     Route: 015
     Dates: start: 20101007, end: 20101020
  2. MIRENA [Suspect]
     Indication: VAGINAL HAEMORRHAGE

REACTIONS (14)
  - URTICARIA [None]
  - OEDEMA PERIPHERAL [None]
  - PYREXIA [None]
  - PAIN [None]
  - ARTHRALGIA [None]
  - UTERINE SPASM [None]
  - HYPERSENSITIVITY [None]
  - LIP OEDEMA [None]
  - CERVIX HAEMORRHAGE UTERINE [None]
  - TREMOR [None]
  - VAGINAL HAEMORRHAGE [None]
  - FACE OEDEMA [None]
  - DEVICE RELATED INFECTION [None]
  - HYPOAESTHESIA [None]
